FAERS Safety Report 6460830-1 (Version None)
Quarter: 2009Q4

REPORT INFORMATION
  Report Type: 
  Country: None (occurrence: None)
  Receive Date: 20091130
  Receipt Date: 20091118
  Transmission Date: 20100525
  Serious: Yes (Hospitalization)
  Sender: FDA-Public Use
  Company Number: GB-ASTRAZENECA-2003CG01031

PATIENT
  Age: 92 Year
  Sex: Male

DRUGS (6)
  1. ZESTRIL [Suspect]
     Route: 048
     Dates: end: 20030512
  2. PROSCAR [Suspect]
     Route: 048
     Dates: end: 20030515
  3. PREVISCAN [Suspect]
     Route: 048
     Dates: start: 20030425, end: 20030512
  4. EUPHYLLINE L.A. [Suspect]
     Route: 048
     Dates: end: 20030512
  5. LASIX [Suspect]
     Route: 048
     Dates: end: 20030512
  6. TAMSULOSIN HCL [Suspect]
     Route: 048
     Dates: end: 20030515

REACTIONS (1)
  - TUBULOINTERSTITIAL NEPHRITIS [None]
